FAERS Safety Report 11540493 (Version 1)
Quarter: 2015Q3

REPORT INFORMATION
  Report Type: Spontaneous
  Country: US (occurrence: US)
  Receive Date: 20150923
  Receipt Date: 20150923
  Transmission Date: 20151125
  Serious: No
  Sender: FDA-Public Use
  Company Number: US-BEH-2015048215

PATIENT
  Sex: Female
  Weight: 94 kg

DRUGS (25)
  1. PREDNISONE. [Concomitant]
     Active Substance: PREDNISONE
  2. TYLENOL EXTRA STRENGTH [Concomitant]
     Active Substance: ACETAMINOPHEN
  3. LANSOPRAZOLE. [Concomitant]
     Active Substance: LANSOPRAZOLE
  4. ZYRTEC [Concomitant]
     Active Substance: CETIRIZINE HYDROCHLORIDE
  5. THEO-24 ER [Concomitant]
  6. TRAMADOL. [Concomitant]
     Active Substance: TRAMADOL
  7. PHENTERMINE. [Concomitant]
     Active Substance: PHENTERMINE
  8. ALBUTEROL SULFATE ER [Concomitant]
     Active Substance: ALBUTEROL SULFATE
  9. PRIVIGEN [Suspect]
     Active Substance: HUMAN IMMUNOGLOBULIN G
     Indication: IMMUNODEFICIENCY COMMON VARIABLE
     Route: 042
  10. FLUOROURACIL. [Concomitant]
     Active Substance: FLUOROURACIL
  11. ACETAMINOPHEN. [Concomitant]
     Active Substance: ACETAMINOPHEN
  12. CYMBALTA [Concomitant]
     Active Substance: DULOXETINE HYDROCHLORIDE
  13. LYRICA [Concomitant]
     Active Substance: PREGABALIN
  14. PREVACID [Concomitant]
     Active Substance: LANSOPRAZOLE
  15. IMIQUIMOD. [Concomitant]
     Active Substance: IMIQUIMOD
  16. DIPHENHYDRAMINE. [Concomitant]
     Active Substance: DIPHENHYDRAMINE
  17. XOLAIR [Concomitant]
     Active Substance: OMALIZUMAB
  18. MEDICAL CANNIBIS CANDY [Concomitant]
  19. SODIUM CHLORIDE. [Concomitant]
     Active Substance: SODIUM CHLORIDE
  20. EPIPEN [Concomitant]
     Active Substance: EPINEPHRINE
  21. SYMBICORT [Concomitant]
     Active Substance: BUDESONIDE\FORMOTEROL FUMARATE DIHYDRATE
  22. VICODIN HP [Concomitant]
     Active Substance: ACETAMINOPHEN\HYDROCODONE BITARTRATE
  23. LORAZEPAM. [Concomitant]
     Active Substance: LORAZEPAM
  24. SINGULAIR [Concomitant]
     Active Substance: MONTELUKAST SODIUM
  25. PROAIR HFA [Concomitant]
     Active Substance: ALBUTEROL SULFATE

REACTIONS (2)
  - Fatigue [Unknown]
  - Malaise [Unknown]
